FAERS Safety Report 6612643-5 (Version None)
Quarter: 2010Q1

REPORT INFORMATION
  Report Type: 
  Country: None (occurrence: None)
  Receive Date: 20100303
  Receipt Date: 20100221
  Transmission Date: 20100710
  Serious: No
  Sender: FDA-Public Use
  Company Number: US-B.I. PHARMACEUTICALS,INC./RIDGEFIELD-2010-BP-02176BP

PATIENT
  Sex: Male

DRUGS (13)
  1. MIRAPEX [Suspect]
     Indication: RESTLESS LEGS SYNDROME
     Dosage: 0.125 MG
     Route: 048
     Dates: start: 20100201, end: 20100218
  2. LIPITOR [Concomitant]
     Indication: BLOOD CHOLESTEROL INCREASED
  3. LISINOPRIL [Concomitant]
     Indication: HYPERTENSION
  4. AMLODIPINE [Concomitant]
     Indication: HYPERTENSION
  5. METOPROLOL TARTRATE [Concomitant]
     Indication: HYPERTENSION
  6. LANTUS [Concomitant]
     Indication: DIABETES MELLITUS
  7. HUMULIN INSULIN [Concomitant]
     Indication: DIABETES MELLITUS
  8. ASPIRIN [Concomitant]
     Dosage: 81 MG
  9. MILK THISTLE EXTRACT [Concomitant]
  10. PROAIR HFA [Concomitant]
     Indication: ASTHMA
  11. ALBUTEROL [Concomitant]
     Indication: ASTHMA
  12. SYMBICORT [Concomitant]
     Indication: ASTHMA
  13. VITAMIN C [Concomitant]
     Indication: SUPPLEMENTATION THERAPY

REACTIONS (5)
  - CONFUSIONAL STATE [None]
  - CONSTIPATION [None]
  - DIZZINESS [None]
  - HALLUCINATION [None]
  - INSOMNIA [None]
